FAERS Safety Report 26066418 (Version 2)
Quarter: 2025Q4

REPORT INFORMATION
  Report Type: Spontaneous
  Country: JP (occurrence: JP)
  Receive Date: 20251119
  Receipt Date: 20251124
  Transmission Date: 20260117
  Serious: Yes (Other)
  Sender: MERCK SHARP & DOHME LLC
  Company Number: JP-009507513-2318469

PATIENT
  Age: 7 Decade
  Sex: Male

DRUGS (2)
  1. KEYTRUDA [Suspect]
     Active Substance: PEMBROLIZUMAB
     Indication: Renal cell carcinoma
     Dosage: STRENGTH: 100MG
     Route: 041
     Dates: start: 202507
  2. LENVIMA [Suspect]
     Active Substance: LENVATINIB
     Indication: Renal cell carcinoma
     Route: 048
     Dates: start: 20250707

REACTIONS (2)
  - Drug eruption [Recovered/Resolved]
  - Proteinuria [Recovered/Resolved]

NARRATIVE: CASE EVENT DATE: 20250801
